FAERS Safety Report 15628263 (Version 1)
Quarter: 2018Q4

REPORT INFORMATION
  Report Type: Spontaneous
  Country: RU (occurrence: RU)
  Receive Date: 20181116
  Receipt Date: 20181116
  Transmission Date: 20190205
  Serious: Yes (Other)
  Sender: FDA-Public Use
  Company Number: PHHY2018RU136263

PATIENT
  Sex: Female

DRUGS (2)
  1. LINEX FORTE [Suspect]
     Active Substance: PROBIOTICS NOS
     Indication: DYSBACTERIOSIS
     Dosage: UNK UNK, TID
     Route: 048
  2. CLINDAMYCIN. [Concomitant]
     Active Substance: CLINDAMYCIN
     Indication: STREPTOCOCCAL INFECTION
     Dosage: 150 MG, QID
     Route: 048

REACTIONS (6)
  - Candida infection [Unknown]
  - Drug ineffective [Unknown]
  - Staphylococcal infection [Unknown]
  - Diarrhoea [Unknown]
  - Abdominal pain upper [Unknown]
  - Escherichia infection [Unknown]
